FAERS Safety Report 9260118 (Version 1)
Quarter: 2013Q2

REPORT INFORMATION
  Report Type: Spontaneous
  Country: US (occurrence: US)
  Receive Date: 20130429
  Receipt Date: 20130429
  Transmission Date: 20140414
  Serious: Yes (Hospitalization)
  Sender: FDA-Public Use
  Company Number: US-BAYER-2013-051768

PATIENT
  Age: 32 Year
  Sex: Female
  Weight: 109 kg

DRUGS (13)
  1. YAZ [Suspect]
     Indication: OVARIAN CYST
  2. YASMIN [Suspect]
     Indication: OVARIAN CYST
  3. OCELLA [Suspect]
  4. TOPIRAMATE [Concomitant]
     Dosage: 25 MG, DAILY
     Dates: start: 20100331, end: 20100624
  5. TOPAMAX [Concomitant]
     Dosage: 25 MG, DAILY
     Dates: start: 20100331, end: 20100624
  6. DETROL LA [Concomitant]
     Dosage: 4 MG, EVERY DAY
     Dates: start: 20100401, end: 20100624
  7. VICODIN [Concomitant]
  8. DULCOLAX [BISACODYL] [Concomitant]
     Dosage: EVERY OTHER DAY
     Route: 054
  9. OXYCONTIN [Concomitant]
     Dosage: 20 MG, UNK
  10. MS CONTIN [Concomitant]
     Dosage: 15 MG, UNK
  11. CELEBREX [Concomitant]
  12. HYDROMORPHONE [Concomitant]
  13. CEFTRIAXONE [Concomitant]

REACTIONS (4)
  - Vena cava thrombosis [None]
  - Deep vein thrombosis [None]
  - Pulmonary embolism [None]
  - Pelvic venous thrombosis [None]
